FAERS Safety Report 7041995-X (Version None)
Quarter: 2010Q4

REPORT INFORMATION
  Report Type: 
  Country: None (occurrence: None)
  Receive Date: 20101013
  Receipt Date: 20100322
  Transmission Date: 20110411
  Serious: No
  Sender: FDA-Public Use
  Company Number: US-ASTRAZENECA-2010SE12534

PATIENT
  Age: 86 Year
  Sex: Female
  Weight: 77.6 kg

DRUGS (1)
  1. SYMBICORT [Suspect]
     Dosage: 64O MCG
     Route: 055
     Dates: start: 20090101

REACTIONS (3)
  - HYPERTENSION [None]
  - OEDEMA [None]
  - WEIGHT INCREASED [None]
